FAERS Safety Report 10020438 (Version 1)
Quarter: 2014Q1

REPORT INFORMATION
  Report Type: Spontaneous
  Country: US (occurrence: US)
  Receive Date: 20140319
  Receipt Date: 20140319
  Transmission Date: 20141002
  Serious: No
  Sender: FDA-Public Use
  Company Number: US-BIOGENIDEC-2014BI022564

PATIENT
  Age: 71 Year
  Sex: Female

DRUGS (9)
  1. TECFIDERA [Suspect]
     Indication: MULTIPLE SCLEROSIS
     Route: 048
     Dates: start: 20131216
  2. BONE PRONO (NOS) [Concomitant]
  3. CHONDROITIN SULFATE COMPLEX [Concomitant]
  4. CRANBERRY [Concomitant]
  5. FISH OIL [Concomitant]
  6. IBUPROFEN [Concomitant]
  7. OIL OF OREGANO [Concomitant]
  8. VITAMIN C [Concomitant]
  9. VITAMIN D [Concomitant]

REACTIONS (1)
  - Nasopharyngitis [Unknown]
